FAERS Safety Report 11620419 (Version 1)
Quarter: 2015Q4

REPORT INFORMATION
  Report Type: Spontaneous
  Country: US (occurrence: US)
  Receive Date: 20151012
  Receipt Date: 20151012
  Transmission Date: 20160304
  Serious: No
  Sender: FDA-Public Use
  Company Number: US-BAYER-2015-433278

PATIENT
  Age: 48 Year
  Sex: Female

DRUGS (1)
  1. CLIMARA PRO [Suspect]
     Active Substance: ESTRADIOL\LEVONORGESTREL
     Indication: HOT FLUSH
     Dosage: UNK
     Route: 062

REACTIONS (6)
  - Intentional product use issue [None]
  - Application site pruritus [None]
  - Application site discomfort [None]
  - Hot flush [None]
  - Drug ineffective [None]
  - Product adhesion issue [None]

NARRATIVE: CASE EVENT DATE: 201509
